FAERS Safety Report 7911026-5 (Version None)
Quarter: 2011Q4

REPORT INFORMATION
  Report Type: 
  Country: None (occurrence: None)
  Receive Date: 20111114
  Receipt Date: 20111110
  Transmission Date: 20120403
  Serious: No
  Sender: FDA-Public Use
  Company Number: US-BIOGENIDEC-2011BI042989

PATIENT
  Age: 33 Year
  Sex: Male

DRUGS (1)
  1. TYSABRI [Suspect]
     Indication: CROHN'S DISEASE
     Route: 042
     Dates: start: 20081015, end: 20110930

REACTIONS (3)
  - GENERAL PHYSICAL HEALTH DETERIORATION [None]
  - CROHN'S DISEASE [None]
  - DRUG INEFFECTIVE [None]
